FAERS Safety Report 5641316-0 (Version None)
Quarter: 2008Q1

REPORT INFORMATION
  Report Type: 
  Country: None (occurrence: None)
  Receive Date: 20080227
  Receipt Date: 20070518
  Transmission Date: 20080703
  Serious: No
  Sender: FDA-Public Use
  Company Number: A0651710A

PATIENT
  Age: 51 Year
  Sex: Female

DRUGS (1)
  1. COMMIT [Suspect]

REACTIONS (1)
  - ORAL PAIN [None]
